FAERS Safety Report 11611136 (Version 1)
Quarter: 2015Q4

REPORT INFORMATION
  Report Type: Spontaneous
  Country: PL (occurrence: PL)
  Receive Date: 20151008
  Receipt Date: 20151008
  Transmission Date: 20160304
  Serious: Yes (Hospitalization)
  Sender: FDA-Public Use
  Company Number: PL-BAYER-2015-432035

PATIENT
  Age: 60 Year
  Sex: Male
  Weight: 114 kg

DRUGS (3)
  1. DIUVER [Suspect]
     Active Substance: TORSEMIDE
     Route: 048
  2. CONCOR [Suspect]
     Active Substance: BISOPROLOL FUMARATE
     Route: 048
  3. ACETYLSALICYLIC ACID (} 100 MG) [Suspect]
     Active Substance: ASPIRIN
     Route: 048

REACTIONS (2)
  - Oral mucosa erosion [Recovered/Resolved]
  - Rash papular [Recovered/Resolved]

NARRATIVE: CASE EVENT DATE: 20150301
